FAERS Safety Report 7488474-3 (Version None)
Quarter: 2011Q2

REPORT INFORMATION
  Report Type: 
  Country: None (occurrence: None)
  Receive Date: 20110511
  Receipt Date: 20110425
  Transmission Date: 20111010
  Serious: Yes (Other)
  Sender: FDA-Public Use
  Company Number: 2011002090

PATIENT
  Age: 17 Year
  Sex: Female

DRUGS (3)
  1. SUNITINIB MALATE [Suspect]
     Indication: NEOPLASM
     Dosage: 25 MG, QD, ORAL
     Route: 048
     Dates: start: 20101216, end: 20110217
  2. BEVACIZUMAB [Suspect]
     Indication: NEOPLASM
  3. ERLOTINIB HYDROCHLORIDE [Suspect]
     Indication: NEOPLASM
     Dosage: MG, ORAL
     Route: 048

REACTIONS (5)
  - PROTEINURIA [None]
  - NO REACTION ON PREVIOUS EXPOSURE TO DRUG [None]
  - HYPOALBUMINAEMIA [None]
  - HAEMOGLOBINURIA [None]
  - PROTEIN TOTAL DECREASED [None]
